FAERS Safety Report 12659776 (Version 1)
Quarter: 2016Q3

REPORT INFORMATION
  Report Type: Report from Study
  Country: US (occurrence: US)
  Receive Date: 20160817
  Receipt Date: 20160817
  Transmission Date: 20161109
  Serious: Yes (Hospitalization, Other)
  Sender: FDA-Public Use
  Company Number: US-ROCHE-782740

PATIENT
  Age: 69 Year
  Sex: Male
  Weight: 84.2 kg

DRUGS (2)
  1. RO 4929097 (GAMMA SECRETASE INHIBITOR) [Suspect]
     Active Substance: INVESTIGATIONAL PRODUCT
     Indication: LIPOSARCOMA
     Dosage: DATE OF LAST DOSE ADMINISTERED: 10/JULY/2011?TOTAL DOSE OF 315 MG PER CYCLE
     Route: 048
     Dates: start: 20110301, end: 20110710
  2. VISMODEGIB [Suspect]
     Active Substance: VISMODEGIB
     Indication: LIPOSARCOMA
     Dosage: DATE OF LAST DOSE ADMINISTERED: 10/JULY/2011?TOTAL DOSE OF 3150 MG PER CYCLE
     Route: 048
     Dates: start: 20110301, end: 20110710

REACTIONS (6)
  - Urinary tract infection [Recovered/Resolved]
  - Wound infection [Recovered/Resolved]
  - Anaemia [Unknown]
  - Lymphocyte count decreased [Unknown]
  - Hypophosphataemia [Recovered/Resolved]
  - Hypophosphataemia [Unknown]

NARRATIVE: CASE EVENT DATE: 20110425
